FAERS Safety Report 9438480 (Version 1)
Quarter: 2013Q3

REPORT INFORMATION
  Report Type: Spontaneous
  Country: US (occurrence: None)
  Receive Date: 20130802
  Receipt Date: 20130802
  Transmission Date: 20140515
  Serious: No
  Sender: FDA-Public Use
  Company Number: None

PATIENT
  Sex: Male

DRUGS (1)
  1. ERIVEDGE [Suspect]
     Dosage: 150MG DAILY ORALLY
     Route: 048
     Dates: start: 20130204, end: 20130729

REACTIONS (4)
  - Decreased appetite [None]
  - Weight decreased [None]
  - Fatigue [None]
  - Muscle spasms [None]
